FAERS Safety Report 9438782 (Version 1)
Quarter: 2013Q3

REPORT INFORMATION
  Report Type: Spontaneous
  Country: JP (occurrence: JP)
  Receive Date: 20130802
  Receipt Date: 20130802
  Transmission Date: 20140515
  Serious: Yes (Other)
  Sender: FDA-Public Use
  Company Number: JP-B.I. PHARMACEUTICALS,INC./RIDGEFIELD-2013-BI-22713NB

PATIENT
  Age: 8 Decade
  Sex: Female

DRUGS (5)
  1. MICARDIS [Suspect]
     Dosage: 40 MG
     Route: 048
  2. BONOTEO [Suspect]
     Dosage: 50 MG
     Route: 048
  3. DOGMATYL [Suspect]
     Route: 065
  4. ALFAROL [Concomitant]
     Dosage: UNK
     Route: 048
  5. MAGNESIUM OXIDE [Concomitant]
     Dosage: UNK
     Route: 048

REACTIONS (2)
  - Surgery [Unknown]
  - Dysphagia [Recovered/Resolved]
